FAERS Safety Report 19394563 (Version 1)
Quarter: 2021Q2

REPORT INFORMATION
  Report Type: Spontaneous
  Country: US (occurrence: US)
  Receive Date: 20210609
  Receipt Date: 20210609
  Transmission Date: 20210717
  Serious: No
  Sender: FDA-Public Use
  Company Number: None

PATIENT
  Age: 57 Year
  Sex: Male
  Weight: 110 kg

DRUGS (1)
  1. BAMLANIVIMAB/ETESEVIMAB (EUA) (BAMLANIVIMAB 700MG/ETESEVIMAB 1400MG (EUA)) [Suspect]
     Active Substance: BAMLANIVIMAB\ETESEVIMAB
     Indication: COVID-19
     Dosage: ?          OTHER DOSE:700/1400 MG;?
     Route: 042
     Dates: start: 20210413, end: 20210413

REACTIONS (4)
  - Myalgia [None]
  - Chest pain [None]
  - Neck pain [None]
  - Back pain [None]

NARRATIVE: CASE EVENT DATE: 20210413
